FAERS Safety Report 13793120 (Version 1)
Quarter: 2017Q3

REPORT INFORMATION
  Report Type: Spontaneous
  Country: US (occurrence: US)
  Receive Date: 20170726
  Receipt Date: 20170726
  Transmission Date: 20171127
  Serious: No
  Sender: FDA-Public Use
  Company Number: US-BAYER-2017-138237

PATIENT
  Sex: Female

DRUGS (1)
  1. MIRALAX [Suspect]
     Active Substance: POLYETHYLENE GLYCOL 3350
     Indication: DIVERTICULITIS
     Dosage: A LITTLE BIT EVERYDAY
     Route: 065

REACTIONS (5)
  - Incorrect dosage administered [Unknown]
  - Off label use [Unknown]
  - Pruritus [Unknown]
  - Product use in unapproved indication [Unknown]
  - Lip swelling [Unknown]
